FAERS Safety Report 6051477-X (Version None)
Quarter: 2009Q1

REPORT INFORMATION
  Report Type: 
  Country: None (occurrence: None)
  Receive Date: 20090126
  Receipt Date: 20090116
  Transmission Date: 20090719
  Serious: Yes (Hospitalization)
  Sender: FDA-Public Use
  Company Number: A0758418A

PATIENT
  Age: 60 Year
  Sex: Male
  Weight: 88.6 kg

DRUGS (11)
  1. AVANDIA [Suspect]
     Dosage: 4MG TWICE PER DAY
     Route: 065
     Dates: start: 20020101, end: 20060101
  2. LANTUS [Concomitant]
     Dates: start: 20051203
  3. AMARYL [Concomitant]
     Dosage: 4MG TWICE PER DAY
     Dates: start: 20020101
  4. CELEBREX [Concomitant]
  5. CLARITIN [Concomitant]
  6. PRINIVIL [Concomitant]
  7. LEVITRA [Concomitant]
  8. CRESTOR [Concomitant]
  9. PREVACID [Concomitant]
  10. ZOCOR [Concomitant]
  11. TOPROL-XL [Concomitant]

REACTIONS (3)
  - CARDIAC DISORDER [None]
  - CORONARY ARTERY OCCLUSION [None]
  - MYOCARDIAL INFARCTION [None]
